FAERS Safety Report 5847361-4 (Version None)
Quarter: 2008Q3

REPORT INFORMATION
  Report Type: 
  Country: None (occurrence: None)
  Receive Date: 20080813
  Receipt Date: 20080801
  Transmission Date: 20090109
  Serious: Yes (Death)
  Sender: FDA-Public Use
  Company Number: DSA_32223_2008

PATIENT
  Age: 49 Year
  Sex: Male

DRUGS (5)
  1. WYPAX (WYPAX - LORAZEPAM) (NOT SPECIFIED) [Suspect]
     Indication: DEPRESSION
     Dosage: (DF ORAL)
     Route: 048
     Dates: start: 20060101, end: 20080701
  2. BUTIKINON [Concomitant]
  3. SULPIRIDE [Concomitant]
  4. FAMOTIDINE [Concomitant]
  5. SOFALCONE [Concomitant]

REACTIONS (1)
  - PULMONARY EMBOLISM [None]
